FAERS Safety Report 24586509 (Version 1)
Quarter: 2024Q4

REPORT INFORMATION
  Report Type: Report from Study
  Country: US (occurrence: US)
  Receive Date: 20241106
  Receipt Date: 20241106
  Transmission Date: 20250115
  Serious: Yes (Hospitalization, Other)
  Sender: ABBVIE
  Company Number: US-ABBVIE-5986236

PATIENT
  Age: 60 Year
  Sex: Female

DRUGS (1)
  1. HUMIRA [Suspect]
     Active Substance: ADALIMUMAB
     Indication: Rheumatoid arthritis
     Route: 058
     Dates: start: 20201006

REACTIONS (11)
  - Blood glucose increased [Unknown]
  - Pancreatic carcinoma [Recovering/Resolving]
  - Nasopharyngitis [Unknown]
  - Paraesthesia [Unknown]
  - Erythema [Unknown]
  - Pain in extremity [Unknown]
  - Hepatic steatosis [Unknown]
  - Hypertension [Unknown]
  - Type 2 diabetes mellitus [Unknown]
  - Pancreatitis [Unknown]
  - Gastric neoplasm [Unknown]

NARRATIVE: CASE EVENT DATE: 20240101
